FAERS Safety Report 9933254 (Version 2)
Quarter: 2014Q1

REPORT INFORMATION
  Report Type: Report from Study
  Country: US (occurrence: US)
  Receive Date: 20140228
  Receipt Date: 20140228
  Transmission Date: 20141002
  Serious: No
  Sender: FDA-Public Use
  Company Number: US-MYLANLABS-2013S1002372

PATIENT
  Age: 14 Year
  Sex: Male
  Weight: 86.18 kg

DRUGS (3)
  1. AMNESTEEM CAPSULES [Suspect]
     Indication: ACNE CYSTIC
     Route: 048
     Dates: start: 20121228, end: 20130125
  2. CLARAVIS [Suspect]
     Indication: ACNE CYSTIC
     Route: 048
     Dates: start: 20121029
  3. AMPICILLIN [Concomitant]
     Indication: ACNE CYSTIC
     Dates: start: 2012

REACTIONS (1)
  - Aggression [Not Recovered/Not Resolved]
